FAERS Safety Report 6458710-0 (Version None)
Quarter: 2009Q4

REPORT INFORMATION
  Report Type: 
  Country: None (occurrence: None)
  Receive Date: 20091127
  Receipt Date: 20091102
  Transmission Date: 20100525
  Serious: No
  Sender: FDA-Public Use
  Company Number: US-ROCHE-666633

PATIENT

DRUGS (1)
  1. TAMIFLU [Suspect]
     Route: 065

REACTIONS (3)
  - MEDICATION ERROR [None]
  - NO ADVERSE EVENT [None]
  - OVERDOSE [None]
